FAERS Safety Report 14302944 (Version 2)
Quarter: 2018Q1

REPORT INFORMATION
  Report Type: Spontaneous
  Country: US (occurrence: US)
  Receive Date: 20171219
  Receipt Date: 20180104
  Transmission Date: 20180509
  Serious: Yes (Other)
  Sender: FDA-Public Use
  Company Number: US-AKORN PHARMACEUTICALS-2017AKN01452

PATIENT
  Sex: Female
  Weight: 89 kg

DRUGS (4)
  1. MYORISAN [Suspect]
     Active Substance: ISOTRETINOIN
     Indication: ACNE CYSTIC
     Dosage: 30 MG, 2X/DAY
     Route: 048
     Dates: start: 20171113, end: 20171204
  2. UNSPECIFIED BIRTH CONTROL [Concomitant]
     Active Substance: UNSPECIFIED INGREDIENT
  3. ALBUTEROL INHALER [Concomitant]
     Active Substance: ALBUTEROL
  4. SYMBICORT [Concomitant]
     Active Substance: BUDESONIDE\FORMOTEROL FUMARATE DIHYDRATE

REACTIONS (1)
  - Breast cancer [Not Recovered/Not Resolved]

NARRATIVE: CASE EVENT DATE: 2017
